FAERS Safety Report 4514923-6 (Version None)
Quarter: 2004Q4

REPORT INFORMATION
  Report Type: 
  Country: None (occurrence: None)
  Receive Date: 20041126
  Receipt Date: 20041111
  Transmission Date: 20050328
  Serious: Yes (Death, Other)
  Sender: FDA-Public Use
  Company Number: 2004066826

PATIENT

DRUGS (3)
  1. ZIPRASIDONE (CAPS) (ZIPRASIDONE) [Suspect]
     Indication: ILL-DEFINED DISORDER
     Dosage: 120 MG (60 MG, 2 IN 1 D), ORAL
     Route: 048
  2. CLOZAPINE [Suspect]
     Indication: ILL-DEFINED DISORDER
  3. PIMOZIDE (PIMOZIDE) [Suspect]
     Indication: ILL-DEFINED DISORDER

REACTIONS (1)
  - TREATMENT NONCOMPLIANCE [None]
